FAERS Safety Report 19855918 (Version 3)
Quarter: 2021Q4

REPORT INFORMATION
  Report Type: Spontaneous
  Country: DE (occurrence: DE)
  Receive Date: 20210920
  Receipt Date: 20211208
  Transmission Date: 20220303
  Serious: No
  Sender: FDA-Public Use
  Company Number: DE-GW PHARMA-202109DEGW04416

PATIENT

DRUGS (11)
  1. CANNABIDIOL [Suspect]
     Active Substance: CANNABIDIOL
     Indication: Severe myoclonic epilepsy of infancy
     Dosage: 350 MILLIGRAM, BID
     Route: 048
  2. CANNABIDIOL [Suspect]
     Active Substance: CANNABIDIOL
     Dosage: 250 MILLIGRAM, BID
     Route: 048
     Dates: start: 2021
  3. RUFINAMIDE [Concomitant]
     Active Substance: RUFINAMIDE
     Indication: Epilepsy
     Dosage: 1600 MILLIGRAM, BID (4-0-4)
     Route: 065
  4. VALPROATE [Concomitant]
     Active Substance: VALPROIC ACID
     Indication: Epilepsy
     Dosage: 1000 MILLIGRAM, BID (1-0-1)
     Route: 065
  5. PHENOBARBITAL [Concomitant]
     Active Substance: PHENOBARBITAL
     Indication: Epilepsy
     Dosage: 100 MILLIGRAM, QD (0-0-1)
     Route: 065
  6. CLONAZEPAM [Concomitant]
     Active Substance: CLONAZEPAM
     Indication: Epilepsy
     Dosage: UNK, PRN
     Route: 065
  7. DIACOMIT [Concomitant]
     Active Substance: STIRIPENTOL
     Indication: Epilepsy
     Dosage: 1250 MILLIGRAM, QD (750-0-500 MILLIGRAM)
     Route: 065
  8. CLOBAZAM [Concomitant]
     Active Substance: CLOBAZAM
     Indication: Epilepsy
     Dosage: 5 MILLIGRAM, BID (5 MILLIGRAM-0-5 MILLIGRAM)
     Route: 065
  9. VALPROIC ACID [Concomitant]
     Active Substance: VALPROIC ACID
     Indication: Epilepsy
     Dosage: 1000 MILLIGRAM, BID (1000 MILLIGRAM-0-1000 MILLIGRAM)
     Route: 065
  10. LUMINAL [PHENOBARBITAL] [Concomitant]
     Indication: Epilepsy
     Dosage: 25 MILLIGRAM, QD (0 - 0 - 25 MG (TO BE DISCONTINUED))
     Route: 065
     Dates: start: 2021
  11. FINTEPLA [Concomitant]
     Active Substance: FENFLURAMINE
     Indication: Epilepsy
     Dosage: 3 MILLILITER, BID (3 - 0 - 3 ML)
     Route: 065
     Dates: start: 2021

REACTIONS (1)
  - Diarrhoea [Unknown]
